FAERS Safety Report 9869859 (Version 2)
Quarter: 2014Q1

REPORT INFORMATION
  Report Type: Spontaneous
  Country: US (occurrence: US)
  Receive Date: 20140205
  Receipt Date: 20140221
  Transmission Date: 20141002
  Serious: Yes (Other)
  Sender: FDA-Public Use
  Company Number: US-009507513-1402USA001058

PATIENT
  Age: 56 Year
  Sex: Male

DRUGS (3)
  1. DEXAMETHASONE [Suspect]
     Indication: PLASMA CELL MYELOMA
  2. MELPHALAN [Concomitant]
     Indication: PLASMA CELL MYELOMA
  3. THALIDOMIDE [Concomitant]
     Indication: PLASMA CELL MYELOMA

REACTIONS (3)
  - Sepsis [Unknown]
  - Strongyloidiasis [Unknown]
  - Abdominal discomfort [Unknown]
